FAERS Safety Report 9111564 (Version 1)
Quarter: 2013Q1

REPORT INFORMATION
  Report Type: Spontaneous
  Country: US (occurrence: US)
  Receive Date: 20130219
  Receipt Date: 20130219
  Transmission Date: 20140127
  Serious: No
  Sender: FDA-Public Use
  Company Number: US-BRISTOL-MYERS SQUIBB COMPANY-17192279

PATIENT
  Age: 48 Year
  Sex: Female
  Weight: 71.2 kg

DRUGS (1)
  1. ABATACEPT SUBQ INJECTION 125MG/ML [Suspect]
     Indication: RHEUMATOID ARTHRITIS
     Dosage: LAST INJECTION WAS ON 29NOV2012,13DEC2012
     Route: 058

REACTIONS (12)
  - Nasopharyngitis [Unknown]
  - Contusion [Unknown]
  - Faeces discoloured [Unknown]
  - Dry mouth [Unknown]
  - Migraine [Unknown]
  - Malaise [Unknown]
  - Drug ineffective [Unknown]
  - Insomnia [Unknown]
  - Feeling jittery [Unknown]
  - Anger [Unknown]
  - Headache [Unknown]
  - Nausea [Unknown]
